FAERS Safety Report 9409856 (Version 2)
Quarter: 2013Q3

REPORT INFORMATION
  Report Type: Spontaneous
  Country: US (occurrence: US)
  Receive Date: 20130719
  Receipt Date: 20130827
  Transmission Date: 20140515
  Serious: Yes (Other)
  Sender: FDA-Public Use
  Company Number: US-PFIZER INC-2013188081

PATIENT
  Age: 42 Year
  Sex: Female

DRUGS (3)
  1. NEURONTIN [Suspect]
     Dosage: 60 MG, 3X/DAY (1 TID)
  2. CYMBALTA [Concomitant]
     Dosage: 60 MG, 1X/DAY (1 DAILY)
  3. SEROQUEL XR [Concomitant]
     Dosage: 200 MG, 1X/DAY (1 PO HS)
     Route: 048

REACTIONS (1)
  - Substance abuse [Unknown]
